FAERS Safety Report 14871528 (Version 9)
Quarter: 2019Q4

REPORT INFORMATION
  Report Type: Report from Study
  Country: DE (occurrence: DE)
  Receive Date: 20180509
  Receipt Date: 20191127
  Transmission Date: 20200122
  Serious: Yes (Hospitalization, Other)
  Sender: FDA-Public Use
  Company Number: DE-BAXTER-2018BAX013409

PATIENT
  Age: 66 Year
  Sex: Male
  Weight: 85 kg

DRUGS (137)
  1. VINCRISTIN E (VINCRISTINE SULFATE) [Suspect]
     Active Substance: VINCRISTINE SULFATE
     Indication: DIFFUSE LARGE B-CELL LYMPHOMA
     Dosage: 2 MG, (INFUSION RATE 2 ML/MIN FROM 07:30 TO 07:35) DOSAGE FORM: UNSPECIFIED
     Route: 041
     Dates: start: 20180221, end: 20180221
  2. PREDNISONE. [Suspect]
     Active Substance: PREDNISONE
     Dosage: 400 MG, UNK
     Route: 048
     Dates: start: 20180503, end: 20180506
  3. PREDNISONE. [Suspect]
     Active Substance: PREDNISONE
     Dosage: 400 MG, UNK
     Route: 048
     Dates: start: 20180523, end: 20180526
  4. RIXIMYO [Suspect]
     Active Substance: RITUXIMAB
     Dosage: 600 MG, (INFUSION RATE 2.78 ML/MIN FROM 07:30 TO 10:30)
     Route: 041
     Dates: start: 20180312, end: 20180312
  5. KEVATRIL [Concomitant]
     Active Substance: GRANISETRON HYDROCHLORIDE
     Indication: PROPHYLAXIS
     Dosage: 3 MG, UNK
     Route: 042
     Dates: start: 20180313, end: 20180313
  6. KEVATRIL [Concomitant]
     Active Substance: GRANISETRON HYDROCHLORIDE
     Dosage: DOSAGE FORM: UNSPECIFIED
     Route: 048
     Dates: start: 20180213, end: 20180213
  7. KEVATRIL [Concomitant]
     Active Substance: GRANISETRON HYDROCHLORIDE
     Dosage: 3MG, UNK
     Route: 042
     Dates: start: 20180808, end: 20180808
  8. KEVATRIL [Concomitant]
     Active Substance: GRANISETRON HYDROCHLORIDE
     Dosage: 1MG, UNK
     Route: 042
     Dates: start: 20180808, end: 20180808
  9. PARACETAMOL [Concomitant]
     Active Substance: ACETAMINOPHEN
     Dosage: 1 G, UNK
     Route: 048
     Dates: start: 20180502, end: 20180502
  10. TAVEGIL [Concomitant]
     Active Substance: CLEMASTINE FUMARATE
     Indication: PROPHYLAXIS
     Dosage: 3 MG, UNK, DOSAGE FORM UNSPECIFIED
     Route: 042
     Dates: start: 20180219, end: 20180219
  11. TAVEGIL [Concomitant]
     Active Substance: CLEMASTINE FUMARATE
     Dosage: 3 MG, UNK
     Route: 042
     Dates: start: 20180612, end: 20180612
  12. TAVEGIL [Concomitant]
     Active Substance: CLEMASTINE FUMARATE
     Dosage: 2 MG, UNK
     Route: 042
     Dates: start: 20180807, end: 20180807
  13. AMPHO MORONAL [Concomitant]
     Active Substance: AMPHOTERICIN B
     Indication: PRODUCT USED FOR UNKNOWN INDICATION
     Dosage: DOSE : 2 (UNITS NOT REPORTED), UNK UNK, BID (2X1)
     Route: 042
     Dates: start: 20180403, end: 20180409
  14. AMPHO MORONAL [Concomitant]
     Active Substance: AMPHOTERICIN B
     Indication: PROPHYLAXIS
     Dosage: UNK UNK, BID (2X1); DOSE: 2 (UNITS NOT REPORTED)
     Route: 048
     Dates: start: 20180219, end: 20180226
  15. AMPHO MORONAL [Concomitant]
     Active Substance: AMPHOTERICIN B
     Dosage: UNK, UNK, BID (2X1) (2)
     Route: 048
     Dates: start: 20180502, end: 20180509
  16. AMPHO MORONAL [Concomitant]
     Active Substance: AMPHOTERICIN B
     Dosage: UNK UNK, BID (2X1)
     Route: 048
     Dates: start: 20180807, end: 20180813
  17. RANITIDIN [Concomitant]
     Active Substance: RANITIDINE HYDROCHLORIDE
     Indication: PRODUCT USED FOR UNKNOWN INDICATION
     Dosage: UNK, DOSAGE FORM: UNSPECIFIED
     Route: 042
     Dates: start: 20180312, end: 20180312
  18. RANITIDIN [Concomitant]
     Active Substance: RANITIDINE HYDROCHLORIDE
     Indication: PROPHYLAXIS
     Dosage: UNK, DOSAGE FORM: UNSPECIFIED
     Route: 042
     Dates: start: 20180219, end: 20180219
  19. RANITIDIN [Concomitant]
     Active Substance: RANITIDINE HYDROCHLORIDE
     Dosage: UNK ()
     Route: 042
     Dates: start: 20180522, end: 20180522
  20. PREDNISOLUT [Concomitant]
     Active Substance: PREDNISOLONE
     Dosage: DOSAGE FORM: UNSPECIFIED
     Route: 048
     Dates: start: 20180213, end: 20180218
  21. PREDNISOLUT [Concomitant]
     Active Substance: PREDNISOLONE
     Dosage: 100 MG, UNK
     Route: 042
     Dates: start: 20180522, end: 20180522
  22. ENDOXAN 1G [Suspect]
     Active Substance: CYCLOPHOSPHAMIDE
     Indication: DIFFUSE LARGE B-CELL LYMPHOMA
     Dosage: 1480 MG, (INFUSION RATE 8.1 ML/MIN FROM 07:35 TO 10:35), DOSAGE FORM : UNSPECIFIED
     Route: 041
     Dates: start: 20180221, end: 20180221
  23. ENDOXAN 1G [Suspect]
     Active Substance: CYCLOPHOSPHAMIDE
     Dosage: 1480 MG, UNK
     Route: 041
     Dates: start: 20180808, end: 20180808
  24. DOXORUBICI N [Suspect]
     Active Substance: DOXORUBICIN
     Dosage: 99 MG, UNK
     Route: 041
  25. DOXORUBICI N [Suspect]
     Active Substance: DOXORUBICIN
     Dosage: 99 MG, UNK
     Route: 041
     Dates: start: 20180808, end: 20180808
  26. VINCRISTIN E (VINCRISTINE SULFATE) [Suspect]
     Active Substance: VINCRISTINE SULFATE
     Indication: PRODUCT USED FOR UNKNOWN INDICATION
     Dosage: 2 MG, INFUSION RATE 2 ML/MIN FROM 07:30 TO 07:35, DOSAGE FORM: UNSPECIFIED
     Route: 041
     Dates: start: 20180313, end: 20180313
  27. PREDNISONE. [Suspect]
     Active Substance: PREDNISONE
     Dosage: 400 MG, UNK, DOSAGE FORM: UNSPECIFIED, DOSAGE FORM: UNSPECIFIED
     Route: 048
     Dates: start: 20180404, end: 20180407
  28. RIXIMYO [Suspect]
     Active Substance: RITUXIMAB
     Dosage: 740MG, (INFUSION RATE 4.2ML/MIN FROM 08:00 TO 10:00)
     Route: 041
     Dates: start: 20180522, end: 20180522
  29. KEVATRIL [Concomitant]
     Active Substance: GRANISETRON HYDROCHLORIDE
     Dosage: 1 MG, UNK
     Route: 042
     Dates: start: 20180504, end: 20180504
  30. PARACETAMOL [Concomitant]
     Active Substance: ACETAMINOPHEN
     Dosage: 1 G, UNK
     Route: 042
     Dates: start: 20180807, end: 20180807
  31. TAVEGIL [Concomitant]
     Active Substance: CLEMASTINE FUMARATE
     Indication: PRODUCT USED FOR UNKNOWN INDICATION
     Dosage: 3 MG, UNK, DOSAGE FORM: UNSPECIFIED
     Route: 042
     Dates: start: 20180403, end: 20180403
  32. ALLOPURINOL. [Concomitant]
     Active Substance: ALLOPURINOL
     Dosage: DOSAGE FORM: UNSPECIFIED
     Route: 048
     Dates: start: 20180313
  33. AMPHO MORONAL [Concomitant]
     Active Substance: AMPHOTERICIN B
     Dosage: UNK, UNK, BID (2X1) (2)
     Route: 048
     Dates: start: 20180522, end: 20180528
  34. RANITIDIN [Concomitant]
     Active Substance: RANITIDINE HYDROCHLORIDE
     Dosage: UNK, DOSAGE FORM: UNSPECIFIED
     Route: 042
     Dates: start: 20180220, end: 20180220
  35. RANITIDIN [Concomitant]
     Active Substance: RANITIDINE HYDROCHLORIDE
     Dosage: UNK, DOSAGE FORM: UNSPECIFIED
     Route: 042
     Dates: start: 20180403, end: 20180403
  36. RANITIDIN [Concomitant]
     Active Substance: RANITIDINE HYDROCHLORIDE
     Dosage: 2 MG, UNK
     Route: 042
     Dates: start: 20180807, end: 20180807
  37. BISOPROLOL [Concomitant]
     Active Substance: BISOPROLOL
     Dosage: 5 MG, UNK
     Route: 048
     Dates: start: 20180720
  38. PREDNISOLUT [Concomitant]
     Active Substance: PREDNISOLONE
     Dosage: 100 MG, UNK
     Route: 042
     Dates: start: 20180403, end: 20180403
  39. PREDNISOLUT [Concomitant]
     Active Substance: PREDNISOLONE
     Dosage: 100 MG, UNK
     Route: 048
  40. PANTOZOL [Concomitant]
     Active Substance: PANTOPRAZOLE SODIUM
     Indication: PROPHYLAXIS
     Dosage: 40 MG, UNK, DOSAGE FORM: UNSPECIFIED
     Route: 048
     Dates: start: 20180219
  41. SILAPO [Concomitant]
     Indication: PRODUCT USED FOR UNKNOWN INDICATION
     Dosage: 20.000 IE, QW (1)
     Route: 058
     Dates: start: 20180503
  42. VINCRISTIN E (VINCRISTINE SULFATE) [Suspect]
     Active Substance: VINCRISTINE SULFATE
     Dosage: 2 MG, (INFUSION RATE 2ML/MIN FROM 07:55 TO 08:00)
     Route: 041
     Dates: start: 20180523, end: 20180523
  43. NEULASTA [Concomitant]
     Active Substance: PEGFILGRASTIM
     Dosage: 6 MG, UNK
     Route: 058
     Dates: start: 20180615, end: 20180615
  44. KEVATRIL [Concomitant]
     Active Substance: GRANISETRON HYDROCHLORIDE
     Dosage: 3 MG, UNK
     Route: 042
     Dates: start: 20180523, end: 20180523
  45. KEVATRIL [Concomitant]
     Active Substance: GRANISETRON HYDROCHLORIDE
     Dosage: 3MG, UNK
     Route: 042
     Dates: start: 20180613, end: 20180613
  46. KEVATRIL [Concomitant]
     Active Substance: GRANISETRON HYDROCHLORIDE
     Dosage: 1MG, UNK
     Route: 042
     Dates: start: 20180705, end: 20180705
  47. PARACETAMOL [Concomitant]
     Active Substance: ACETAMINOPHEN
     Indication: PROPHYLAXIS
     Dosage: 1 G, UNK
     Route: 048
     Dates: start: 20180403, end: 20180403
  48. TAVEGIL [Concomitant]
     Active Substance: CLEMASTINE FUMARATE
     Dosage: UNK, DOSAGE FORM: UNSPECIFIED
     Route: 042
     Dates: start: 20180220, end: 20180220
  49. MESNA. [Concomitant]
     Active Substance: MESNA
     Dosage: 1200 MG, UNK, DOSAGE FORM: UNSPECIFIED
     Route: 042
     Dates: start: 20180313, end: 20180313
  50. MESNA. [Concomitant]
     Active Substance: MESNA
     Dosage: 1200 MG, UNK
     Route: 042
     Dates: start: 20180704, end: 20180704
  51. ALLOPURINOL. [Concomitant]
     Active Substance: ALLOPURINOL
     Indication: PROPHYLAXIS
     Dosage: 300 MG, UNK,
     Route: 048
     Dates: start: 20180213, end: 20180311
  52. AMPHO MORONAL [Concomitant]
     Active Substance: AMPHOTERICIN B
     Dosage: 2 UNK, DOSAGE FORM: UNSPECIFIED
     Route: 048
     Dates: start: 20180213, end: 20180409
  53. RANITIDIN [Concomitant]
     Active Substance: RANITIDINE HYDROCHLORIDE
     Dosage: UNK
     Route: 042
     Dates: start: 20180703, end: 20180703
  54. ACIC [Concomitant]
     Active Substance: ACYCLOVIR
     Indication: PROPHYLAXIS
     Dosage: 800 MG, UNK, DOSAGE FORM: UNSPECIFIED
     Route: 048
     Dates: start: 20180219
  55. PREDNISOLUT [Concomitant]
     Active Substance: PREDNISOLONE
     Dosage: 100 MG, UNK
     Route: 042
     Dates: start: 20180807, end: 20180807
  56. ENDOXAN 1G [Suspect]
     Active Substance: CYCLOPHOSPHAMIDE
     Dosage: 1480 MG, (INFUSION RATE 4.17 ML/MIN FROM 07:35 TO 09:35), DOSAGE FORM : UNSPECIFIED
     Route: 041
     Dates: start: 20180313, end: 20180313
  57. ENDOXAN 1G [Suspect]
     Active Substance: CYCLOPHOSPHAMIDE
     Dosage: 1480 MG,(INFUSION RATE 4.2 ML/MIN FROM 08:00 TO 10:00)
     Route: 041
     Dates: start: 20180523, end: 20180523
  58. DOXORUBICI N [Suspect]
     Active Substance: DOXORUBICIN
     Indication: PRODUCT USED FOR UNKNOWN INDICATION
     Dosage: 99 MG, (INFUSION RATE 8.3 ML/MIN FROM 09:35 TO 10:05)
     Route: 041
     Dates: start: 20180313, end: 20180313
  59. DOXORUBICI N [Suspect]
     Active Substance: DOXORUBICIN
     Dosage: 99 MG, (INFUSION RATE 8.3 ML/MIN FROM 10:00 TO 10:30)
     Route: 041
     Dates: start: 20180704, end: 20180704
  60. VINCRISTIN E (VINCRISTINE SULFATE) [Suspect]
     Active Substance: VINCRISTINE SULFATE
     Dosage: 2 MG, UNK
     Route: 041
  61. VINCRISTIN E (VINCRISTINE SULFATE) [Suspect]
     Active Substance: VINCRISTINE SULFATE
     Dosage: 2 MG, (INFUSION RATE 2 ML/MIN FROM 07:55 TO 08:00)
     Route: 041
     Dates: start: 20180704, end: 20180704
  62. PREDNISONE. [Suspect]
     Active Substance: PREDNISONE
     Indication: PRODUCT USED FOR UNKNOWN INDICATION
     Dosage: 500 MG, UNK, DOSAGE FORM: UNSPECIFIED
     Route: 048
     Dates: start: 20180313, end: 20180317
  63. PREDNISONE. [Suspect]
     Active Substance: PREDNISONE
     Indication: DIFFUSE LARGE B-CELL LYMPHOMA
     Dosage: 500 MG, UNK, DOSAGE FORM: UNSPECIFIED
     Route: 048
     Dates: start: 20180221, end: 20180225
  64. PREDNISONE. [Suspect]
     Active Substance: PREDNISONE
     Dosage: 400 MG, UNK
     Route: 048
     Dates: start: 20180613, end: 20180616
  65. RIXIMYO [Suspect]
     Active Substance: RITUXIMAB
     Indication: DIFFUSE LARGE B-CELL LYMPHOMA
     Dosage: 740 MG, (INFUSION RATE 1.7 ML/MIN FROM 07:30 TO 11:30)
     Route: 041
     Dates: start: 20180219, end: 20180219
  66. PARACETAMOL [Concomitant]
     Active Substance: ACETAMINOPHEN
     Indication: PRODUCT USED FOR UNKNOWN INDICATION
     Dosage: 1 G, UNK
     Route: 048
     Dates: start: 20180312, end: 20180312
  67. PARACETAMOL [Concomitant]
     Active Substance: ACETAMINOPHEN
     Dosage: 1 G, UNK
     Route: 048
     Dates: start: 20180522, end: 20180522
  68. MESNA. [Concomitant]
     Active Substance: MESNA
     Dosage: 1200 MG, UNK
     Route: 042
     Dates: start: 20180523, end: 20180523
  69. MESNA. [Concomitant]
     Active Substance: MESNA
     Dosage: 1200 MG, UNK
     Route: 042
     Dates: start: 20180613, end: 20180613
  70. AMPHO MORONAL [Concomitant]
     Active Substance: AMPHOTERICIN B
     Dosage: UNK UNK, BID (2X1)
     Route: 048
     Dates: start: 20180612, end: 20180618
  71. RANITIDIN [Concomitant]
     Active Substance: RANITIDINE HYDROCHLORIDE
     Dosage: UNK
     Route: 042
     Dates: start: 20180612, end: 20180612
  72. PREDNISOLUT [Concomitant]
     Active Substance: PREDNISOLONE
     Dosage: 100 MG, UNK
     Route: 042
     Dates: start: 20180502, end: 20180502
  73. COTRIM [Concomitant]
     Active Substance: SULFAMETHOXAZOLE\TRIMETHOPRIM
     Indication: PROPHYLAXIS
     Dosage: UNK (3 DAYS WEEKLY), DOSAGE FORM: UNSPECIFIED
     Route: 048
     Dates: start: 20180219
  74. ENDOXAN 1G [Suspect]
     Active Substance: CYCLOPHOSPHAMIDE
     Indication: PRODUCT USED FOR UNKNOWN INDICATION
     Dosage: 1480 MG, (INFUSION RATE 8.3 ML/MIN FROM 07:35 TO 09:35), DOSAGE FORM : UNSPECIFIED
     Route: 041
     Dates: start: 20180404, end: 20180404
  75. ENDOXAN 1G [Suspect]
     Active Substance: CYCLOPHOSPHAMIDE
     Dosage: 1480 MG,(INFUSION RATE 4.17 ML/MIN FROM 07:35 TO 09:35)
     Route: 041
     Dates: start: 20180503, end: 20180503
  76. ENDOXAN 1G [Suspect]
     Active Substance: CYCLOPHOSPHAMIDE
     Dosage: 1480 MG, (INFUSION RATE 4.2 ML/MIN FROM 08:00 TO 10:00)
     Route: 042
     Dates: start: 20180613, end: 20180613
  77. ENDOXAN 1G [Suspect]
     Active Substance: CYCLOPHOSPHAMIDE
     Dosage: 1480 MG, UNK
     Route: 041
  78. ENDOXAN 1G [Suspect]
     Active Substance: CYCLOPHOSPHAMIDE
     Dosage: 1480 MG, (INFUSION RATE 4.2 ML/MIN FROM 08:00 TO 10:00)
     Route: 041
     Dates: start: 20180704, end: 20180704
  79. DOXORUBICI N [Suspect]
     Active Substance: DOXORUBICIN
     Dosage: 99 MG, (INFUSION RATE 8.3 ML/MIN FROM 09:35 TO 10:05)
     Route: 041
     Dates: start: 20180503, end: 20180503
  80. VINCRISTIN E (VINCRISTINE SULFATE) [Suspect]
     Active Substance: VINCRISTINE SULFATE
     Dosage: 2 MG, INFUSION RATE 2 ML/MIN FROM 07:55 TO 08:00
     Route: 041
     Dates: start: 20180613, end: 20180613
  81. RIXIMYO [Suspect]
     Active Substance: RITUXIMAB
     Dosage: 740MG, UNK, (INFUSION RATE 4.2 ML/MIN FROM 07:30 TO 09:30)
     Route: 041
     Dates: start: 20180612, end: 20180612
  82. NEULASTA [Suspect]
     Active Substance: PEGFILGRASTIM
     Indication: LEUKOPENIA
     Dosage: 6 MG, UNK
     Route: 058
     Dates: start: 20180327, end: 20180327
  83. NEULASTA [Concomitant]
     Active Substance: PEGFILGRASTIM
     Indication: PROPHYLAXIS
     Dosage: 6 MG, UNK
     Route: 058
     Dates: start: 20180505, end: 20180505
  84. NEULASTA [Concomitant]
     Active Substance: PEGFILGRASTIM
     Dosage: 6 MG, UNK
     Route: 058
     Dates: start: 20180525, end: 20180525
  85. NEULASTA [Concomitant]
     Active Substance: PEGFILGRASTIM
     Dosage: 6 MG, UNK
     Route: 058
     Dates: start: 20180706, end: 20180706
  86. KEVATRIL [Concomitant]
     Active Substance: GRANISETRON HYDROCHLORIDE
     Dosage: 1 MG, UNK
     Route: 042
     Dates: start: 20180314, end: 20180314
  87. KEVATRIL [Concomitant]
     Active Substance: GRANISETRON HYDROCHLORIDE
     Dosage: 1 MG, UNK, DOSAGE FORM: UNSPECIFIED
     Route: 042
     Dates: start: 20180222, end: 20180222
  88. KEVATRIL [Concomitant]
     Active Substance: GRANISETRON HYDROCHLORIDE
     Dosage: 1 MG, UNK
     Route: 042
     Dates: start: 20180524, end: 20180524
  89. TAVEGIL [Concomitant]
     Active Substance: CLEMASTINE FUMARATE
     Dosage: 3 MG, UNK
     Route: 042
     Dates: start: 20180220, end: 20180220
  90. MESNA. [Concomitant]
     Active Substance: MESNA
     Indication: PROPHYLAXIS
     Dosage: 1200 MG, UNK, DOSAGE FORM: UNSPECIFIED
     Route: 042
     Dates: start: 20180221, end: 20180221
  91. MESNA. [Concomitant]
     Active Substance: MESNA
     Dosage: 1200 MG, UNK
     Route: 042
     Dates: start: 20180503, end: 20180503
  92. MESNA. [Concomitant]
     Active Substance: MESNA
     Dosage: 1200 MG, UNK
     Route: 042
     Dates: start: 20180808, end: 20180808
  93. PREDNISOLUT [Concomitant]
     Active Substance: PREDNISOLONE
     Indication: PROPHYLAXIS
     Dosage: 100 MG, UNK
     Route: 042
     Dates: start: 20180219, end: 20180219
  94. PREDNISONE. [Suspect]
     Active Substance: PREDNISONE
     Dosage: 400 MG, UNK
     Route: 048
     Dates: start: 20180704, end: 20180707
  95. PREDNISONE. [Suspect]
     Active Substance: PREDNISONE
     Route: 048
     Dates: start: 20180808, end: 20180811
  96. KEVATRIL [Concomitant]
     Active Substance: GRANISETRON HYDROCHLORIDE
     Dosage: 1 MG, UNK
     Route: 042
     Dates: start: 20180405, end: 20180405
  97. KEVATRIL [Concomitant]
     Active Substance: GRANISETRON HYDROCHLORIDE
     Dosage: DOSAGE FORM: UNSPECIFIED
     Route: 048
     Dates: start: 20180222, end: 20180405
  98. KEVATRIL [Concomitant]
     Active Substance: GRANISETRON HYDROCHLORIDE
     Dosage: 3MG, UNK
     Route: 042
     Dates: start: 20180503, end: 20180503
  99. KEVATRIL [Concomitant]
     Active Substance: GRANISETRON HYDROCHLORIDE
     Dosage: 1MG, UNK
     Route: 042
     Dates: start: 20180614, end: 20180614
  100. PARACETAMOL [Concomitant]
     Active Substance: ACETAMINOPHEN
     Dosage: 1 G, UNK, DOSAGE FORM: UNSPECIFIED
     Route: 048
     Dates: start: 20180219, end: 20180219
  101. TAVEGIL [Concomitant]
     Active Substance: CLEMASTINE FUMARATE
     Dosage: 3 MG, UNK, DOSAGE FORM: UNSPECIFIED
     Route: 042
     Dates: start: 20180312, end: 20180312
  102. TAVEGIL [Concomitant]
     Active Substance: CLEMASTINE FUMARATE
     Dosage: 3 MG, UNK
     Route: 042
     Dates: start: 20180522, end: 20180522
  103. AMPHO MORONAL [Concomitant]
     Active Substance: AMPHOTERICIN B
     Dosage: UNK UNK, BID (2X1); DOSE: 2 (UNITS NOT REPORTED)
     Route: 048
     Dates: start: 20180312, end: 20180318
  104. AMPHO MORONAL [Concomitant]
     Active Substance: AMPHOTERICIN B
     Dosage: UNK UNK, BID (2X1)
     Route: 048
     Dates: start: 20180703, end: 20180709
  105. RANITIDIN [Concomitant]
     Active Substance: RANITIDINE HYDROCHLORIDE
     Dosage: UNK ()
     Route: 042
     Dates: start: 20180502, end: 20180502
  106. PREDNISOLUT [Concomitant]
     Active Substance: PREDNISOLONE
     Dosage: 100 MG, UNK
     Route: 042
     Dates: start: 20180703, end: 20180703
  107. DOXORUBICI N [Suspect]
     Active Substance: DOXORUBICIN
     Dosage: 99 MG, UNK
     Route: 041
     Dates: start: 20180613, end: 20180613
  108. VINCRISTIN E (VINCRISTINE SULFATE) [Suspect]
     Active Substance: VINCRISTINE SULFATE
     Dosage: 2 MG, (INFUSION RATE 2 ML/MIN FROM 07:30 TO 07:35), DOSAGE FORM: UNSPECIFIED
     Route: 041
     Dates: start: 20180404, end: 20180404
  109. VINCRISTIN E (VINCRISTINE SULFATE) [Suspect]
     Active Substance: VINCRISTINE SULFATE
     Dosage: 2 MG, (INFUSION RATE 2ML/MIN FROM 07:30 TO 07:35)
     Route: 041
     Dates: start: 20180503, end: 20180503
  110. RIXIMYO [Suspect]
     Active Substance: RITUXIMAB
     Indication: PRODUCT USED FOR UNKNOWN INDICATION
     Dosage: 740 MG, (INFUSION RATE 8.3 ML/MIN FROM 07:30 TO 09:30)
     Route: 041
     Dates: start: 20180403, end: 20180403
  111. NEULASTA [Concomitant]
     Active Substance: PEGFILGRASTIM
     Indication: PRODUCT USED FOR UNKNOWN INDICATION
     Dosage: 6 MG, UNK
     Route: 058
     Dates: start: 20180514, end: 20180514
  112. KEVATRIL [Concomitant]
     Active Substance: GRANISETRON HYDROCHLORIDE
     Indication: PRODUCT USED FOR UNKNOWN INDICATION
     Dosage: 3 MG, UNK
     Route: 042
     Dates: start: 20180404, end: 20180404
  113. KEVATRIL [Concomitant]
     Active Substance: GRANISETRON HYDROCHLORIDE
     Dosage: 3 MG, UNK
     Route: 042
     Dates: start: 20180221, end: 20180221
  114. KEVATRIL [Concomitant]
     Active Substance: GRANISETRON HYDROCHLORIDE
     Dosage: 3MG, UNK
     Route: 042
     Dates: start: 20180704, end: 20180704
  115. PARACETAMOL [Concomitant]
     Active Substance: ACETAMINOPHEN
     Dosage: 1 G, UNK
     Route: 048
     Dates: start: 20190703, end: 20190703
  116. TAVEGIL [Concomitant]
     Active Substance: CLEMASTINE FUMARATE
     Dosage: 3 MG, UNK
     Route: 042
     Dates: start: 20180502, end: 20180502
  117. RANITIDIN [Concomitant]
     Active Substance: RANITIDINE HYDROCHLORIDE
     Dosage: DOSAGE FORM: UNSPECIFIED
     Route: 042
     Dates: start: 20180219, end: 20180413
  118. BISOPROLOL [Concomitant]
     Active Substance: BISOPROLOL
     Indication: HYPERTENSION
     Dosage: 2.5 MG, UNK, DOSAGE FORM: UNSPECIFIED
     Route: 048
     Dates: start: 20170830, end: 20180719
  119. PREDNISOLUT [Concomitant]
     Active Substance: PREDNISOLONE
     Dosage: 100 MG, UNK
     Route: 042
     Dates: start: 20180312, end: 20180312
  120. PREDNISOLUT [Concomitant]
     Active Substance: PREDNISOLONE
     Dosage: 100 MG, UNK
     Route: 042
     Dates: start: 20180612, end: 20180612
  121. DOXORUBICI N [Suspect]
     Active Substance: DOXORUBICIN
     Indication: DIFFUSE LARGE B-CELL LYMPHOMA
     Dosage: 99 MG, (INFUSION RATE 8.3 ML/MIN FROM 10:35 TO 11:05)
     Route: 041
     Dates: start: 20180221, end: 20180221
  122. DOXORUBICI N [Suspect]
     Active Substance: DOXORUBICIN
     Dosage: 99 MG, (INFUSION RATE 8.3 ML/MIN FROM 09:35 TO 10:05)
     Route: 041
     Dates: start: 20180404, end: 20180404
  123. DOXORUBICI N [Suspect]
     Active Substance: DOXORUBICIN
     Dosage: 99 MG, (INFUSION RATE 8.4ML/MIN FROM 10:00 TO 10:30)
     Route: 041
     Dates: start: 20180523, end: 20180523
  124. VINCRISTIN E (VINCRISTINE SULFATE) [Suspect]
     Active Substance: VINCRISTINE SULFATE
     Dosage: 2 MG, UNK
     Route: 041
     Dates: start: 20180808, end: 20180808
  125. RIXIMYO [Suspect]
     Active Substance: RITUXIMAB
     Dosage: 740MG, (INFUSION RATE 4.17 ML/MIN FROM 07:30 TO 09:30)
     Route: 041
     Dates: start: 20180502, end: 20180502
  126. RIXIMYO [Suspect]
     Active Substance: RITUXIMAB
     Dosage: 740MG, UNK
     Route: 041
  127. RIXIMYO [Suspect]
     Active Substance: RITUXIMAB
     Dosage: 740 MG, (INFUSION RATE 4.2 ML/MIN FROM 08:00 TO 10:00)
     Route: 041
     Dates: start: 20180703, end: 20180703
  128. RIXIMYO [Suspect]
     Active Substance: RITUXIMAB
     Dosage: 740 MG, UNK
     Route: 041
     Dates: start: 20180807, end: 20180807
  129. NEULASTA [Concomitant]
     Active Substance: PEGFILGRASTIM
     Dosage: 6 MG, UNK
     Route: 058
     Dates: start: 20180810, end: 20180810
  130. KEVATRIL [Concomitant]
     Active Substance: GRANISETRON HYDROCHLORIDE
     Dosage: DOSAGE FORM: UNSPECIFIED
     Route: 048
     Dates: start: 20180221, end: 20180404
  131. PARACETAMOL [Concomitant]
     Active Substance: ACETAMINOPHEN
     Dosage: 1 G, UNK
     Route: 048
     Dates: start: 20180220, end: 20180220
  132. PARACETAMOL [Concomitant]
     Active Substance: ACETAMINOPHEN
     Dosage: 1 G, UNK
     Route: 048
     Dates: start: 20180612, end: 20180612
  133. TAVEGIL [Concomitant]
     Active Substance: CLEMASTINE FUMARATE
     Dosage: UNK
     Route: 042
     Dates: start: 20180703, end: 20180703
  134. MESNA. [Concomitant]
     Active Substance: MESNA
     Indication: PRODUCT USED FOR UNKNOWN INDICATION
     Dosage: 1200 MG, UNK, DOSAGE FORM: UNSPECIFIED
     Route: 042
     Dates: start: 20180404, end: 20180404
  135. PREDNISOLUT [Concomitant]
     Active Substance: PREDNISOLONE
     Indication: PRODUCT USED FOR UNKNOWN INDICATION
     Dosage: 100 MG, UNK
     Route: 042
     Dates: start: 20180220, end: 20180220
  136. PREDNISOLUT [Concomitant]
     Active Substance: PREDNISOLONE
     Route: 048
     Dates: start: 20180213, end: 20180213
  137. SALBUTAMOL [Concomitant]
     Active Substance: ALBUTEROL
     Indication: ASTHMA
     Dosage: UNK, PRN
     Route: 048
     Dates: start: 201711

REACTIONS (21)
  - Vitamin D deficiency [Not Recovered/Not Resolved]
  - Pain [Recovered/Resolved]
  - Nausea [Recovered/Resolved]
  - Lymphoedema [Recovered/Resolved]
  - Leukopenia [Recovered/Resolved]
  - Anaemia [Not Recovered/Not Resolved]
  - Chills [Unknown]
  - Neutropenia [Unknown]
  - Fibrin D dimer increased [Unknown]
  - Deep vein thrombosis [Recovered/Resolved]
  - Polyneuropathy [Not Recovered/Not Resolved]
  - C-reactive protein increased [Recovered/Resolved]
  - Drug therapeutic incompatibility [Recovered/Resolved]
  - Dizziness [Recovered/Resolved]
  - Neutropenic sepsis [Recovered/Resolved]
  - Product use in unapproved indication [Unknown]
  - Off label use [Unknown]
  - Chest pain [Unknown]
  - Pulpitis dental [Recovered/Resolved]
  - Asthma [Recovered/Resolved]
  - Pyrexia [Unknown]

NARRATIVE: CASE EVENT DATE: 20180221
